FAERS Safety Report 17887363 (Version 1)
Quarter: 2020Q2

REPORT INFORMATION
  Report Type: Spontaneous
  Country: US (occurrence: US)
  Receive Date: 20200611
  Receipt Date: 20200611
  Transmission Date: 20200714
  Serious: Yes (Other)
  Sender: FDA-Public Use
  Company Number: US-BRACCO-2020US00097

PATIENT
  Age: 51 Year
  Sex: Male

DRUGS (1)
  1. MULTIHANCE [Suspect]
     Active Substance: GADOBENATE DIMEGLUMINE
     Indication: MAGNETIC RESONANCE IMAGING JOINT
     Dosage: 15 ML
     Route: 042
     Dates: start: 20200103, end: 20200103

REACTIONS (3)
  - Burning sensation [Unknown]
  - Nausea [Unknown]
  - Seizure [Unknown]

NARRATIVE: CASE EVENT DATE: 20200103
